FAERS Safety Report 5883992 (Version 3)
Quarter: 2013Q4

REPORT INFORMATION
  Report Type: Spontaneous
  Country: US (occurrence: US)
  Receive Date: 20050916
  Receipt Date: 20131210
  Transmission Date: 20140711
  Serious: Yes (Hospitalization)
  Sender: FDA-Public Use
  Company Number: 2005BI016713

PATIENT
  Age: 50 Year
  Sex: Female

DRUGS (4)
  1. AVONEX [Suspect]
     Indication: MULTIPLE SCLEROSIS
     Route: 030
  2. AVONEX [Suspect]
     Indication: MULTIPLE SCLEROSIS
     Route: 030
     Dates: start: 20010615, end: 2005
  3. AVONEX [Suspect]
     Indication: MULTIPLE SCLEROSIS
     Route: 030
     Dates: start: 2005, end: 2006
  4. AVONEX [Suspect]
     Indication: MULTIPLE SCLEROSIS
     Dates: start: 2006

REACTIONS (4)
  - Spinal laminectomy [Recovered/Resolved]
  - Post procedural complication [Unknown]
  - Post procedural infection [Recovered/Resolved]
  - Gait disturbance [Unknown]
